FAERS Safety Report 7950756-6 (Version None)
Quarter: 2011Q4

REPORT INFORMATION
  Report Type: 
  Country: None (occurrence: None)
  Receive Date: 20111201
  Receipt Date: 20111123
  Transmission Date: 20120403
  Serious: Yes (Other)
  Sender: FDA-Public Use
  Company Number: US-AMGEN-USASP2011062176

PATIENT
  Sex: Female

DRUGS (5)
  1. EPOGEN [Suspect]
     Dosage: 10000 IU, 2 TIMES/WK
  2. IRON [Concomitant]
  3. EPOGEN [Suspect]
     Indication: RENAL FAILURE CHRONIC
     Dosage: 5000 IU, 2 TIMES/WK
     Dates: start: 20100601
  4. EPOGEN [Suspect]
     Dosage: 20000 IU, 2 TIMES/WK
  5. LISINOPRIL [Concomitant]

REACTIONS (2)
  - ANTI-ERYTHROPOIETIN ANTIBODY [None]
  - BLOOD PRODUCT TRANSFUSION DEPENDENT [None]
